FAERS Safety Report 15918622 (Version 1)
Quarter: 2019Q1

REPORT INFORMATION
  Report Type: Spontaneous
  Country: GB (occurrence: GB)
  Receive Date: 20190205
  Receipt Date: 20190205
  Transmission Date: 20190417
  Serious: Yes (Other)
  Sender: FDA-Public Use
  Company Number: GB-TEVA-2019-GB-1006496

PATIENT
  Age: 75 Year
  Sex: Female
  Weight: 81 kg

DRUGS (9)
  1. CO-AMILOZIDE [Suspect]
     Active Substance: AMILORIDE HYDROCHLORIDE\HYDROCHLOROTHIAZIDE
     Indication: OEDEMA PERIPHERAL
     Dosage: 1 DOSAGE FORMS DAILY; 5MG/50MG
     Route: 048
     Dates: start: 19981101, end: 20181227
  2. CITALOPRAM [Concomitant]
     Active Substance: CITALOPRAM HYDROBROMIDE
  3. CHEMYDUR XL [Concomitant]
     Active Substance: ISOSORBIDE MONONITRATE
  4. FOLIC ACID. [Concomitant]
     Active Substance: FOLIC ACID
  5. MIRABEGRON [Concomitant]
     Active Substance: MIRABEGRON
  6. SOLIFENACIN [Concomitant]
     Active Substance: SOLIFENACIN
  7. ACETYLSALICYLIC ACID [Concomitant]
     Active Substance: ASPIRIN
  8. BISOPROLOL [Concomitant]
     Active Substance: BISOPROLOL
  9. EZETIMIBE. [Concomitant]
     Active Substance: EZETIMIBE

REACTIONS (2)
  - Actinic keratosis [Recovered/Resolved]
  - Nasal cavity cancer [Recovered/Resolved]
